FAERS Safety Report 18749252 (Version 1)
Quarter: 2021Q1

REPORT INFORMATION
  Report Type: Spontaneous
  Country: CA (occurrence: CA)
  Receive Date: 20210116
  Receipt Date: 20210116
  Transmission Date: 20210419
  Serious: Yes (Other)
  Sender: FDA-Public Use
  Company Number: CA-ACCORD-214418

PATIENT
  Age: 23 Year
  Sex: Male

DRUGS (8)
  1. TACROLIMUS. [Suspect]
     Active Substance: TACROLIMUS
     Indication: IMMUNOSUPPRESSANT DRUG THERAPY
  2. METHYLPREDNISOLONE. [Suspect]
     Active Substance: METHYLPREDNISOLONE
     Indication: TRANSPLANT REJECTION
     Dosage: FREQUENCY: 1 EVERY 1 DAYS
     Route: 042
  3. SIMULECT [Suspect]
     Active Substance: BASILIXIMAB
     Indication: IMMUNOSUPPRESSANT DRUG THERAPY
     Dosage: DOSAGE FORM: POWDER FOR SOLUTION INTRAVENOUS
  4. COTRIMOXAZOLE [Concomitant]
     Active Substance: SULFAMETHOXAZOLE\TRIMETHOPRIM
  5. BACTRIM [Concomitant]
     Active Substance: SULFAMETHOXAZOLE\TRIMETHOPRIM
  6. PREDNISONE. [Suspect]
     Active Substance: PREDNISONE
     Indication: TRANSPLANT REJECTION
     Route: 048
  7. MYCOPHENOLIC ACID. [Suspect]
     Active Substance: MYCOPHENOLIC ACID
     Indication: IMMUNOSUPPRESSANT DRUG THERAPY
  8. SULFAMETHOXAZOLE/TRIMETHOPRIM [Concomitant]
     Active Substance: SULFAMETHOXAZOLE\TRIMETHOPRIM

REACTIONS (2)
  - Transplant rejection [Unknown]
  - Pneumocystis jirovecii pneumonia [Unknown]
